FAERS Safety Report 6574160-0 (Version None)
Quarter: 2010Q1

REPORT INFORMATION
  Report Type: 
  Country: None (occurrence: None)
  Receive Date: 20100208
  Receipt Date: 20100128
  Transmission Date: 20100710
  Serious: Yes (Other)
  Sender: FDA-Public Use
  Company Number: US-AMGEN-QUU389170

PATIENT
  Sex: Female

DRUGS (4)
  1. NPLATE [Suspect]
     Indication: IDIOPATHIC THROMBOCYTOPENIC PURPURA
     Dates: start: 20090629
  2. CORTICOSTEROIDS [Concomitant]
  3. IMMU-G [Concomitant]
  4. PROMACTA [Concomitant]
     Dates: start: 20090201, end: 20090601

REACTIONS (4)
  - BONE MARROW DISORDER [None]
  - BONE MARROW RETICULIN FIBROSIS [None]
  - CHRONIC LYMPHOCYTIC LEUKAEMIA [None]
  - THERAPEUTIC RESPONSE DECREASED [None]
